FAERS Safety Report 24340726 (Version 4)
Quarter: 2025Q1

REPORT INFORMATION
  Report Type: Spontaneous
  Country: FR (occurrence: FR)
  Receive Date: 20240919
  Receipt Date: 20250324
  Transmission Date: 20250409
  Serious: Yes (Other)
  Sender: PURDUE
  Company Number: FR-ETHYPHARM-2024001258

PATIENT
  Sex: Female

DRUGS (9)
  1. MORPHINE SULFATE [Suspect]
     Active Substance: MORPHINE SULFATE
     Indication: Pain
     Route: 065
  2. MORPHINE SULFATE [Suspect]
     Active Substance: MORPHINE SULFATE
     Indication: Substance use
     Route: 045
  3. MORPHINE SULFATE [Suspect]
     Active Substance: MORPHINE SULFATE
     Route: 045
  4. MORPHINE SULFATE [Suspect]
     Active Substance: MORPHINE SULFATE
     Route: 054
  5. MORPHINE SULFATE [Suspect]
     Active Substance: MORPHINE SULFATE
     Route: 042
  6. SKENAN [Suspect]
     Active Substance: MORPHINE SULFATE
     Indication: Pain
     Route: 054
  7. SKENAN [Suspect]
     Active Substance: MORPHINE SULFATE
     Route: 042
  8. SKENAN [Suspect]
     Active Substance: MORPHINE SULFATE
     Route: 065
  9. SKENAN [Suspect]
     Active Substance: MORPHINE SULFATE
     Route: 045

REACTIONS (14)
  - Drug dependence [Unknown]
  - Drug abuse [Unknown]
  - Drug diversion [Unknown]
  - Intentional product use issue [Unknown]
  - Wrong technique in product usage process [Unknown]
  - Intentional product misuse [Unknown]
  - Dysgeusia [Unknown]
  - Fatigue [Unknown]
  - Therapeutic response decreased [Unknown]
  - Pruritus [Unknown]
  - Feeling abnormal [Unknown]
  - Dry mouth [Unknown]
  - Feeling hot [Unknown]
  - Nasal congestion [Unknown]
